FAERS Safety Report 24574120 (Version 1)
Quarter: 2024Q4

REPORT INFORMATION
  Report Type: Spontaneous
  Country: GB (occurrence: GB)
  Receive Date: 20241104
  Receipt Date: 20241104
  Transmission Date: 20250115
  Serious: Yes (Other)
  Sender: ACCORD
  Company Number: None

PATIENT
  Age: 75 Year
  Sex: Female
  Weight: 51 kg

DRUGS (4)
  1. APIXABAN [Suspect]
     Active Substance: APIXABAN
     Indication: Product used for unknown indication
     Dosage: ONE TO BE TAKEN TWICE A DAY
     Dates: start: 20240820, end: 20241008
  2. BISOPROLOL [Concomitant]
     Active Substance: BISOPROLOL\BISOPROLOL FUMARATE
     Dosage: ONE TO BE TAKEN EACH DAY
     Dates: start: 20240820
  3. RIVAROXABAN [Concomitant]
     Active Substance: RIVAROXABAN
     Indication: Ischaemic stroke
     Dosage: ONE TO BE TAKEN EACH DAY
     Dates: start: 20241010, end: 20241014
  4. OMEPRAZOLE [Concomitant]
     Active Substance: OMEPRAZOLE
     Dosage: ONE TO BE TAKEN EACH DAY
     Dates: start: 20241024

REACTIONS (1)
  - Arthralgia [Recovered/Resolved]
